FAERS Safety Report 12695489 (Version 1)
Quarter: 2016Q3

REPORT INFORMATION
  Report Type: Spontaneous
  Country: ES (occurrence: ES)
  Receive Date: 20160829
  Receipt Date: 20160829
  Transmission Date: 20161109
  Serious: Yes (Other)
  Sender: FDA-Public Use
  Company Number: ES-JNJFOC-20160822452

PATIENT

DRUGS (1)
  1. RISPERIDONE. [Suspect]
     Active Substance: RISPERIDONE
     Indication: PRODUCT USED FOR UNKNOWN INDICATION
     Route: 065

REACTIONS (6)
  - Dyslipidaemia [Unknown]
  - Blood pressure systolic increased [Unknown]
  - Metabolic syndrome [Unknown]
  - Insulin resistance [Unknown]
  - Waist circumference increased [Unknown]
  - Weight increased [Unknown]
